FAERS Safety Report 4280820-7 (Version None)
Quarter: 2004Q1

REPORT INFORMATION
  Report Type: 
  Country: None (occurrence: None)
  Receive Date: 20040129
  Receipt Date: 20040122
  Transmission Date: 20041129
  Serious: Yes (Other)
  Sender: FDA-Public Use
  Company Number: 200410520US

PATIENT
  Sex: Female

DRUGS (1)
  1. LOVENOX [Suspect]
     Dosage: DOSE: UNK
     Route: 058

REACTIONS (2)
  - MATERNAL DRUGS AFFECTING FOETUS [None]
  - PREMATURE BABY [None]
